FAERS Safety Report 6927412-6 (Version None)
Quarter: 2010Q3

REPORT INFORMATION
  Report Type: 
  Country: None (occurrence: None)
  Receive Date: 20100812
  Receipt Date: 20100730
  Transmission Date: 20110219
  Serious: Yes (Hospitalization)
  Sender: FDA-Public Use
  Company Number: A-US2010-38589

PATIENT
  Age: 67 Year
  Sex: Female

DRUGS (4)
  1. TRACLEER [Suspect]
     Indication: PULMONARY ARTERIAL HYPERTENSION
     Dosage: MG, ORAL
     Route: 048
     Dates: start: 20091112
  2. REVATIO [Concomitant]
  3. LASIX [Concomitant]
  4. METFORMIN HCL [Concomitant]

REACTIONS (2)
  - HEPATIC FAILURE [None]
  - RENAL FAILURE [None]
